FAERS Safety Report 5494369-7 (Version None)
Quarter: 2007Q4

REPORT INFORMATION
  Report Type: 
  Country: None (occurrence: None)
  Receive Date: 20071015
  Receipt Date: 20070711
  Transmission Date: 20080405
  Serious: Yes (Hospitalization)
  Sender: FDA-Public Use
  Company Number: S07-USA-02955-01

PATIENT
  Sex: Female

DRUGS (2)
  1. LEXAPRO [Suspect]
     Dates: end: 20070711
  2. NUMEROUS MEDICATIONS (NOS) [Concomitant]

REACTIONS (1)
  - HYPONATRAEMIA [None]
